FAERS Safety Report 7209571-3 (Version None)
Quarter: 2011Q1

REPORT INFORMATION
  Report Type: 
  Country: None (occurrence: None)
  Receive Date: 20110104
  Receipt Date: 20101230
  Transmission Date: 20110831
  Serious: Yes (Other)
  Sender: FDA-Public Use
  Company Number: US-AMGEN-USASP2010002217

PATIENT

DRUGS (9)
  1. ENBREL [Suspect]
     Indication: PSORIASIS
     Dosage: UNK
     Dates: start: 20100101, end: 20100201
  2. ENBREL [Suspect]
     Dosage: 50 MG, QWK
     Route: 058
     Dates: start: 20091228
  3. ATARAX [Concomitant]
     Dosage: UNK
     Dates: start: 20101102
  4. CLOBEX                             /00012002/ [Concomitant]
     Dosage: UNK
     Dates: start: 20101208
  5. CETAPHIL                           /00498501/ [Concomitant]
     Indication: XEROSIS
     Dosage: UNK
     Dates: start: 20091021
  6. HYDROCORTISONE [Concomitant]
     Indication: SEBORRHOEIC DERMATITIS
  7. HUMIRA [Concomitant]
     Indication: PSORIASIS
  8. TACLONEX [Concomitant]
     Dosage: UNK
     Dates: start: 20101102
  9. HYDROCORTISONE [Concomitant]
     Indication: PSORIASIS
     Dosage: UNK
     Dates: start: 20091228

REACTIONS (6)
  - CORONARY ARTERY OCCLUSION [None]
  - SEBORRHOEIC DERMATITIS [None]
  - HAEMATOCHEZIA [None]
  - BODY TINEA [None]
  - CHEST PAIN [None]
  - PSORIASIS [None]
